FAERS Safety Report 5443215-6 (Version None)
Quarter: 2007Q3

REPORT INFORMATION
  Report Type: 
  Country: None (occurrence: None)
  Receive Date: 20070905
  Receipt Date: 20070830
  Transmission Date: 20080115
  Serious: Yes (Other)
  Sender: FDA-Public Use
  Company Number: JP-AVENTIS-200712343JP

PATIENT
  Age: 65 Year
  Sex: Female
  Weight: 54 kg

DRUGS (5)
  1. ARAVA [Suspect]
     Indication: RHEUMATOID ARTHRITIS
     Route: 048
     Dates: start: 20070404, end: 20070406
  2. ARAVA [Suspect]
     Route: 048
     Dates: start: 20070407, end: 20070613
  3. FAMOTIDINE [Concomitant]
     Route: 048
     Dates: end: 20070710
  4. BONALON [Concomitant]
     Indication: OSTEOPOROSIS
     Route: 048
  5. HYPEN [Concomitant]
     Route: 048

REACTIONS (3)
  - ALANINE AMINOTRANSFERASE INCREASED [None]
  - ASPARTATE AMINOTRANSFERASE INCREASED [None]
  - BLOOD ALKALINE PHOSPHATASE INCREASED [None]
